FAERS Safety Report 6611039-X (Version None)
Quarter: 2010Q1

REPORT INFORMATION
  Report Type: 
  Country: None (occurrence: None)
  Receive Date: 20100303
  Receipt Date: 20100217
  Transmission Date: 20100710
  Serious: Yes (Hospitalization, Other)
  Sender: FDA-Public Use
  Company Number: GB-RANBAXY-2010RR-31197

PATIENT
  Sex: Male

DRUGS (1)
  1. SIMVASTATIN [Suspect]
     Dosage: 40 MG, UNK
     Route: 048
     Dates: start: 20090701

REACTIONS (3)
  - BACK PAIN [None]
  - BLOOD CREATINE PHOSPHOKINASE INCREASED [None]
  - MUSCULOSKELETAL PAIN [None]
